FAERS Safety Report 20011917 (Version 3)
Quarter: 2022Q1

REPORT INFORMATION
  Report Type: Spontaneous
  Country: US (occurrence: US)
  Receive Date: 20211029
  Receipt Date: 20220303
  Transmission Date: 20220423
  Serious: No
  Sender: FDA-Public Use
  Company Number: US-GSKCCFUS-CASE-01204130_AE-70491

PATIENT
  Sex: Female

DRUGS (3)
  1. NUCALA [Suspect]
     Active Substance: MEPOLIZUMAB
     Indication: Asthma
     Dosage: UNK, Z ONCE A MONTH
     Dates: start: 202202
  2. NUCALA [Suspect]
     Active Substance: MEPOLIZUMAB
  3. NUCALA [Suspect]
     Active Substance: MEPOLIZUMAB
     Indication: Asthma
     Dosage: UNK
     Dates: start: 2021

REACTIONS (9)
  - Arthralgia [Unknown]
  - Pain in extremity [Unknown]
  - Bronchitis [Unknown]
  - Back pain [Recovering/Resolving]
  - Gait disturbance [Unknown]
  - Myositis [Unknown]
  - Depression [Recovered/Resolved]
  - Crying [Unknown]
  - Muscle spasms [Unknown]
